FAERS Safety Report 14532491 (Version 1)
Quarter: 2018Q1

REPORT INFORMATION
  Report Type: Spontaneous
  Country: FR (occurrence: FR)
  Receive Date: 20180214
  Receipt Date: 20180214
  Transmission Date: 20180509
  Serious: Yes (Hospitalization)
  Sender: FDA-Public Use
  Company Number: FR-BAUSCH-BL-2018-003857

PATIENT
  Age: 82 Year
  Sex: Male
  Weight: 87 kg

DRUGS (2)
  1. ORBENINE [Suspect]
     Active Substance: CLOXACILLIN SODIUM
     Indication: STAPHYLOCOCCAL BACTERAEMIA
     Dosage: 1 G/5 ML, POWDER AND SOLUTION FOR SOLUTION FOR INJECTION (IV), 1 GRAM IN 4 HOURS
     Route: 041
     Dates: start: 20171215, end: 20171218
  2. GENTAMICINE [Suspect]
     Active Substance: GENTAMICIN
     Indication: STAPHYLOCOCCAL BACTERAEMIA
     Route: 011
     Dates: start: 20180109, end: 20180112

REACTIONS (2)
  - Renal tubular disorder [Not Recovered/Not Resolved]
  - Acute kidney injury [Not Recovered/Not Resolved]

NARRATIVE: CASE EVENT DATE: 20180117
